FAERS Safety Report 13458453 (Version 1)
Quarter: 2017Q2

REPORT INFORMATION
  Report Type: Spontaneous
  Country: US (occurrence: US)
  Receive Date: 20170419
  Receipt Date: 20170419
  Transmission Date: 20170830
  Serious: Yes (Other)
  Sender: FDA-Public Use
  Company Number: US-PFIZER INC-2017165948

PATIENT
  Sex: Female

DRUGS (1)
  1. EMBEDA [Suspect]
     Active Substance: MORPHINE SULFATE\NALTREXONE HYDROCHLORIDE
     Dosage: 20-0.8 MG  1X/DAY
     Route: 048

REACTIONS (3)
  - Cardiac flutter [Unknown]
  - Dyspnoea [Unknown]
  - Feeling abnormal [Unknown]
